FAERS Safety Report 19062520 (Version 1)
Quarter: 2021Q1

REPORT INFORMATION
  Report Type: Spontaneous
  Country: GB (occurrence: GB)
  Receive Date: 20210326
  Receipt Date: 20210326
  Transmission Date: 20210420
  Serious: Yes (Other)
  Sender: FDA-Public Use
  Company Number: GB-ACCORD-220572

PATIENT
  Age: 30 Year
  Sex: Female
  Weight: 65 kg

DRUGS (6)
  1. DESLORATADINE. [Concomitant]
     Active Substance: DESLORATADINE
     Indication: ILL-DEFINED DISORDER
  2. LAMOTRIGINE. [Concomitant]
     Active Substance: LAMOTRIGINE
     Indication: ILL-DEFINED DISORDER
  3. XOLAIR [Concomitant]
     Active Substance: OMALIZUMAB
     Indication: ILL-DEFINED DISORDER
  4. FEXOFENADINE [Concomitant]
     Active Substance: FEXOFENADINE HYDROCHLORIDE
     Indication: ILL-DEFINED DISORDER
  5. LEVETIRACETAM. [Suspect]
     Active Substance: LEVETIRACETAM
     Indication: EPILEPSY
     Dosage: 500MG BD
     Route: 048
     Dates: start: 20210306
  6. FIASP [Concomitant]
     Active Substance: INSULIN ASPART
     Indication: ILL-DEFINED DISORDER

REACTIONS (2)
  - Medication error [Unknown]
  - Dizziness [Not Recovered/Not Resolved]

NARRATIVE: CASE EVENT DATE: 20210308
